FAERS Safety Report 21050999 (Version 1)
Quarter: 2022Q3

REPORT INFORMATION
  Report Type: Report from Study
  Country: US (occurrence: US)
  Receive Date: 20220707
  Receipt Date: 20220707
  Transmission Date: 20221027
  Serious: Yes (Other)
  Sender: FDA-Public Use
  Company Number: US-SUN PHARMACEUTICAL INDUSTRIES LTD-2022R1-342864

PATIENT
  Sex: Male

DRUGS (2)
  1. ABIRATERONE [Suspect]
     Active Substance: ABIRATERONE
     Indication: Product used for unknown indication
     Dosage: UNK
     Route: 065
  2. ENZALUTAMIDE [Suspect]
     Active Substance: ENZALUTAMIDE
     Indication: Prostate cancer
     Dosage: UNK
     Route: 048

REACTIONS (6)
  - Prostatic specific antigen increased [Unknown]
  - Dizziness [Recovering/Resolving]
  - Vertigo [Recovering/Resolving]
  - Gait disturbance [Recovering/Resolving]
  - Headache [Unknown]
  - Limb discomfort [Unknown]
